FAERS Safety Report 9937766 (Version 4)
Quarter: 2014Q2

REPORT INFORMATION
  Report Type: Spontaneous
  Country: US (occurrence: US)
  Receive Date: 20140303
  Receipt Date: 20140423
  Transmission Date: 20141212
  Serious: No
  Sender: FDA-Public Use
  Company Number: US-BIOGENIDEC-2014BI016065

PATIENT
  Age: 67 Year
  Sex: Female

DRUGS (5)
  1. TECFIDERA [Suspect]
     Indication: RELAPSING-REMITTING MULTIPLE SCLEROSIS
     Dates: start: 20131030, end: 20140212
  2. TECFIDERA [Suspect]
     Indication: RELAPSING-REMITTING MULTIPLE SCLEROSIS
     Route: 048
     Dates: start: 20140210, end: 20140211
  3. NORCO [Concomitant]
  4. ATIVAN [Concomitant]
  5. SOMA [Concomitant]

REACTIONS (28)
  - Urticaria [Unknown]
  - Malaise [Not Recovered/Not Resolved]
  - Musculoskeletal stiffness [Not Recovered/Not Resolved]
  - Prescribed underdose [Recovered/Resolved]
  - Secondary progressive multiple sclerosis [Unknown]
  - Pain in extremity [Unknown]
  - Multiple sclerosis relapse [Not Recovered/Not Resolved]
  - Vomiting [Recovered/Resolved]
  - Diarrhoea [Recovered/Resolved]
  - Eye disorder [Recovered/Resolved]
  - Progressive multiple sclerosis [Unknown]
  - Oral pruritus [Recovered/Resolved]
  - Oral discomfort [Recovered/Resolved]
  - Foreign body sensation in eyes [Recovered/Resolved]
  - Neurological symptom [Recovered/Resolved]
  - Gastrooesophageal reflux disease [Recovered/Resolved]
  - Blindness [Not Recovered/Not Resolved]
  - Feeling abnormal [Not Recovered/Not Resolved]
  - Memory impairment [Unknown]
  - Abasia [Not Recovered/Not Resolved]
  - General symptom [Unknown]
  - Coordination abnormal [Unknown]
  - Musculoskeletal disorder [Unknown]
  - Dyspepsia [Recovered/Resolved]
  - Burning sensation [Recovered/Resolved]
  - Pruritus [Recovered/Resolved]
  - Flushing [Recovered/Resolved]
  - Rash [Unknown]
